FAERS Safety Report 19685262 (Version 1)
Quarter: 2021Q3

REPORT INFORMATION
  Report Type: Report from Study
  Country: US (occurrence: US)
  Receive Date: 20210811
  Receipt Date: 20210811
  Transmission Date: 20211014
  Serious: Yes (Disabling)
  Sender: FDA-Public Use
  Company Number: US-APELLIS-00649

PATIENT
  Age: 77 Year
  Sex: Male
  Weight: 72.8 kg

DRUGS (4)
  1. 1328584 (GLOBALC3SEP20): TIMOLOL MALEATE [Concomitant]
     Indication: OPEN ANGLE GLAUCOMA
     Dosage: 1 GTT
     Route: 047
     Dates: start: 20210109
  2. 3927951 (GLOBALC3SEP20): PRESERVISION AREDS 2 [Concomitant]
     Indication: DRY AGE-RELATED MACULAR DEGENERATION
     Dosage: 2 CAPSULE
     Route: 048
     Dates: start: 2013
  3. 150 MG/ML PEGCETACOPLAN [Suspect]
     Active Substance: PEGCETACOPLAN
     Indication: DRY AGE-RELATED MACULAR DEGENERATION
     Route: 050
     Dates: start: 20210105, end: 20210112
  4. 150 MG/ML PEGCETACOPLAN [Suspect]
     Active Substance: PEGCETACOPLAN
     Indication: DRY AGE-RELATED MACULAR DEGENERATION
     Route: 050
     Dates: start: 20190522, end: 20201102

REACTIONS (2)
  - Visual acuity reduced [Recovered/Resolved]
  - Uveitis [Recovered/Resolved]

NARRATIVE: CASE EVENT DATE: 20210108
